FAERS Safety Report 15598850 (Version 2)
Quarter: 2019Q2

REPORT INFORMATION
  Report Type: Spontaneous
  Country: US (occurrence: US)
  Receive Date: 20181108
  Receipt Date: 20190410
  Transmission Date: 20190711
  Serious: Yes (Death, Other)
  Sender: FDA-Public Use
  Company Number: US-ASTRAZENECA-2018SF34866

PATIENT
  Age: 60 Year
  Sex: Male
  Weight: 81.6 kg

DRUGS (17)
  1. PRILOSEC [Suspect]
     Active Substance: OMEPRAZOLE MAGNESIUM
     Indication: GASTROOESOPHAGEAL REFLUX DISEASE
     Route: 048
     Dates: start: 20080723, end: 20150311
  2. GLIPIZIDE. [Concomitant]
     Active Substance: GLIPIZIDE
  3. PLAVIX [Concomitant]
     Active Substance: CLOPIDOGREL BISULFATE
  4. GLYBURIDE. [Concomitant]
     Active Substance: GLYBURIDE
  5. FOSINOPRIL [Concomitant]
     Active Substance: FOSINOPRIL
  6. PREVACID [Suspect]
     Active Substance: LANSOPRAZOLE
     Indication: GASTROOESOPHAGEAL REFLUX DISEASE
     Route: 065
     Dates: start: 20080723, end: 20150311
  7. SIMVASTATIN. [Concomitant]
     Active Substance: SIMVASTATIN
  8. ALLOPURINOL. [Concomitant]
     Active Substance: ALLOPURINOL
  9. TERAZOSIN [Concomitant]
     Active Substance: TERAZOSIN\TERAZOSIN HYDROCHLORIDE
  10. LANTUS [Concomitant]
     Active Substance: INSULIN GLARGINE
  11. RANEXA [Concomitant]
     Active Substance: RANOLAZINE
  12. COREG [Concomitant]
     Active Substance: CARVEDILOL
  13. ACTOS [Concomitant]
     Active Substance: PIOGLITAZONE HYDROCHLORIDE
  14. PRILOSEC [Suspect]
     Active Substance: OMEPRAZOLE MAGNESIUM
     Indication: GASTROOESOPHAGEAL REFLUX DISEASE
     Dosage: GENERIC OMEPRAZOLE, 40MG ONCE DAILY
     Route: 065
     Dates: start: 20110318, end: 20150311
  15. PREVACID [Suspect]
     Active Substance: LANSOPRAZOLE
     Indication: GASTROOESOPHAGEAL REFLUX DISEASE
     Dosage: GENERIC LANSOPRAZOLE, 30MG ONCE DAILY
     Route: 065
     Dates: start: 20090121, end: 20091222
  16. CARVEDILOL. [Concomitant]
     Active Substance: CARVEDILOL
  17. METFORMIN [Concomitant]
     Active Substance: METFORMIN HYDROCHLORIDE

REACTIONS (6)
  - Death [Fatal]
  - End stage renal disease [Unknown]
  - Renal disorder [Unknown]
  - Nephrogenic anaemia [Unknown]
  - Chronic kidney disease [Not Recovered/Not Resolved]
  - Tubulointerstitial nephritis [Not Recovered/Not Resolved]

NARRATIVE: CASE EVENT DATE: 2010
